FAERS Safety Report 9798656 (Version 1)
Quarter: 2014Q1

REPORT INFORMATION
  Report Type: Spontaneous
  Country: US (occurrence: US)
  Receive Date: 20140106
  Receipt Date: 20140106
  Transmission Date: 20141002
  Serious: No
  Sender: FDA-Public Use
  Company Number: US-GILEAD-2010-0029582

PATIENT
  Sex: Male
  Weight: 99.79 kg

DRUGS (5)
  1. LETAIRIS [Suspect]
     Indication: PULMONARY ARTERIAL HYPERTENSION
     Route: 048
     Dates: start: 20100528
  2. TAZTIA XT [Concomitant]
  3. LOVASTATIN [Concomitant]
  4. LEVOTHYROXINE [Concomitant]
  5. OXYCONTIN [Concomitant]

REACTIONS (1)
  - Dyspnoea [Unknown]
